FAERS Safety Report 25292481 (Version 1)
Quarter: 2025Q2

REPORT INFORMATION
  Report Type: Spontaneous
  Country: US (occurrence: US)
  Receive Date: 20250510
  Receipt Date: 20250510
  Transmission Date: 20250717
  Serious: No
  Sender: SANOFI AVENTIS
  Company Number: US-SA-2025SA124757

PATIENT
  Sex: Female
  Weight: 66.36 kg

DRUGS (4)
  1. DUPIXENT [Suspect]
     Active Substance: DUPILUMAB
     Indication: Dermatitis atopic
     Dosage: 300 MG, QOW
     Route: 058
  2. PROGESTERONE [Concomitant]
     Active Substance: PROGESTERONE
  3. EBGLYSS [LEBRIKIZUMAB] [Concomitant]
  4. VITAMIN D3 K2 [Concomitant]

REACTIONS (1)
  - Therapeutic response decreased [Not Recovered/Not Resolved]
